FAERS Safety Report 25853880 (Version 3)
Quarter: 2025Q4

REPORT INFORMATION
  Report Type: Report from Study
  Country: US (occurrence: US)
  Receive Date: 20250926
  Receipt Date: 20251112
  Transmission Date: 20260118
  Serious: Yes (Other)
  Sender: ABBVIE
  Company Number: US-ABBVIE-6328792

PATIENT
  Age: 41 Year
  Sex: Male

DRUGS (2)
  1. SKYRIZI [Suspect]
     Active Substance: RISANKIZUMAB-RZAA
     Indication: Psoriasis
     Route: 058
     Dates: start: 20201001
  2. SKYRIZI [Suspect]
     Active Substance: RISANKIZUMAB-RZAA
     Route: 058
     Dates: start: 20230301

REACTIONS (9)
  - Spinal operation [Recovering/Resolving]
  - Arthralgia [Recovering/Resolving]
  - Wound [Unknown]
  - Skin laceration [Unknown]
  - Skin fissures [Unknown]
  - Scab [Unknown]
  - Pharyngeal operation [Recovering/Resolving]
  - Psoriasis [Unknown]
  - Muscle strain [Unknown]

NARRATIVE: CASE EVENT DATE: 20241001
